FAERS Safety Report 9281032 (Version 1)
Quarter: 2013Q2

REPORT INFORMATION
  Report Type: Spontaneous
  Country: US (occurrence: US)
  Receive Date: 20130509
  Receipt Date: 20130509
  Transmission Date: 20140414
  Serious: Yes (Death)
  Sender: FDA-Public Use
  Company Number: US-GLAXOSMITHKLINE-A1022971A

PATIENT
  Age: 73 Year
  Sex: Female

DRUGS (3)
  1. VOTRIENT [Suspect]
     Indication: VULVAL CANCER
     Dosage: 400MG PER DAY
     Route: 048
     Dates: start: 20130205
  2. ENOXAPARIN [Concomitant]
  3. ZOFRAN [Concomitant]

REACTIONS (1)
  - Death [Fatal]
